FAERS Safety Report 5639636-9 (Version None)
Quarter: 2008Q1

REPORT INFORMATION
  Report Type: 
  Country: None (occurrence: None)
  Receive Date: 20080222
  Receipt Date: 20080214
  Transmission Date: 20080703
  Serious: Yes (Death)
  Sender: FDA-Public Use
  Company Number: CLOF-1000088

PATIENT
  Age: 61 Year
  Sex: Female

DRUGS (11)
  1. CLOLAR [Suspect]
     Dosage: 22.5 M/M2, QDX5,
     Dates: start: 20080204, end: 20080208
  2. IDARUBICIN (IDARUBICIN) UNKNOWN [Suspect]
     Indication: MYELOID LEUKAEMIA
     Dosage: 10 MG/M2, QDX3, INTRAVENOUS
     Route: 042
     Dates: start: 20080204, end: 20080206
  3. CEFPODOXIME PROXETIL (CEFPODOXIME PROXETIL) UNKNOWN [Concomitant]
  4. DARVON [Concomitant]
  5. DIPHENHYDRAMINE HCL [Concomitant]
  6. FERROUS SULFATE TAB [Concomitant]
  7. POTASSIUM CHLORIDE [Concomitant]
  8. PROCHLORPHERAZINE (PROCHLORPERAZINE) [Concomitant]
  9. SENNA-S (DOCUSATE SODIUM, SENNA ALEXANDRINA) [Concomitant]
  10. VALTREX [Concomitant]
  11. VORICONAZOLE (VORICONAZOLE) [Concomitant]

REACTIONS (1)
  - DEATH [None]
